FAERS Safety Report 13663514 (Version 1)
Quarter: 2017Q2

REPORT INFORMATION
  Report Type: Spontaneous
  Country: US (occurrence: US)
  Receive Date: 20170619
  Receipt Date: 20170619
  Transmission Date: 20170830
  Serious: No
  Sender: FDA-Public Use
  Company Number: US-PFIZER INC-2017262186

PATIENT
  Age: 72 Year
  Sex: Male
  Weight: 86 kg

DRUGS (2)
  1. LYRICA [Suspect]
     Active Substance: PREGABALIN
     Indication: NEUROPATHY PERIPHERAL
     Dosage: 300 MG, DAILY (100 MG MORNING AND 200 MG NIGHT)
  2. LYRICA [Suspect]
     Active Substance: PREGABALIN
     Indication: PAIN IN EXTREMITY

REACTIONS (4)
  - Nerve injury [Unknown]
  - Condition aggravated [Not Recovered/Not Resolved]
  - Drug ineffective [Recovering/Resolving]
  - Neuropathy peripheral [Not Recovered/Not Resolved]
